FAERS Safety Report 5026263-X (Version None)
Quarter: 2006Q2

REPORT INFORMATION
  Report Type: 
  Country: None (occurrence: None)
  Receive Date: 20060608
  Receipt Date: 20060531
  Transmission Date: 20061013
  Serious: Yes (Life-Threatening, Other)
  Sender: FDA-Public Use
  Company Number: 2006063928

PATIENT
  Age: 1 Day
  Sex: Female
  Weight: 3.9 kg

DRUGS (7)
  1. SILDENAFIL CITRATE [Suspect]
     Indication: PULMONARY HYPERTENSION
     Dosage: QID, ORAL
     Route: 048
     Dates: start: 20060518, end: 20060501
  2. MIDAZOLAM HCL [Suspect]
     Indication: ILL-DEFINED DISORDER
  3. CEFOTAXIME SODIUM [Concomitant]
  4. EPINEPHRINE [Concomitant]
  5. AMOXICILLIN [Concomitant]
  6. NETILMICIN SULFATE (NETILMICIN SULFATE) [Concomitant]
  7. SUFENTANIL CITRATE [Concomitant]

REACTIONS (2)
  - DRUG INTERACTION [None]
  - NEONATAL HYPOTENSION [None]
